FAERS Safety Report 5325360-9 (Version None)
Quarter: 2007Q2

REPORT INFORMATION
  Report Type: 
  Country: None (occurrence: None)
  Receive Date: 20070515
  Receipt Date: 20070504
  Transmission Date: 20071010
  Serious: Yes (Life-Threatening)
  Sender: FDA-Public Use
  Company Number: GB-JNJFOC-20061000268

PATIENT
  Age: 75 Year
  Sex: Female

DRUGS (7)
  1. GALANTAMINE HYDROBROMIDE [Suspect]
     Indication: DEMENTIA ALZHEIMER'S TYPE
     Route: 048
  2. ALENDRONIC ACID [Concomitant]
  3. ASPIRIN [Concomitant]
  4. CALCICHEW [Concomitant]
  5. PREDNISOLONE [Concomitant]
     Indication: IDIOPATHIC THROMBOCYTOPENIC PURPURA
     Route: 048
  6. RANITIDINE [Concomitant]
     Indication: GASTROINTESTINAL HAEMORRHAGE
     Route: 048
  7. SIMVASTATIN [Concomitant]
     Indication: HYPERCHOLESTEROLAEMIA

REACTIONS (2)
  - HAEMATEMESIS [None]
  - MELAENA [None]
